FAERS Safety Report 8518382-8 (Version None)
Quarter: 2012Q3

REPORT INFORMATION
  Report Type: 
  Country: None (occurrence: None)
  Receive Date: 20120718
  Receipt Date: 20120718
  Transmission Date: 20120928
  Serious: Yes (Other)
  Sender: FDA-Public Use
  Company Number: GB-BAYER-2012-066070

PATIENT

DRUGS (1)
  1. ULTRAVIST 300 [Suspect]
     Dosage: UNK
     Dates: start: 20120627, end: 20120627

REACTIONS (3)
  - DYSPNOEA [None]
  - CHEST DISCOMFORT [None]
  - HYPERSENSITIVITY [None]
